FAERS Safety Report 8459919-7 (Version None)
Quarter: 2012Q2

REPORT INFORMATION
  Report Type: 
  Country: None (occurrence: None)
  Receive Date: 20120622
  Receipt Date: 20120619
  Transmission Date: 20120825
  Serious: Yes (Life-Threatening)
  Sender: FDA-Public Use
  Company Number: PHHY2009JP26412

PATIENT
  Sex: Male

DRUGS (7)
  1. ASPIRIN [Suspect]
     Indication: CHRONIC MYELOID LEUKAEMIA
     Dosage: 100 MG, DAILY
     Route: 048
     Dates: start: 20080501
  2. ENALAPRIL MALEATE [Concomitant]
     Indication: CHRONIC MYELOID LEUKAEMIA
     Dosage: 2.5 MG, DAILY
     Dates: start: 20080623
  3. TASIGNA [Suspect]
     Dosage: 200 MG DAILY
     Route: 048
     Dates: start: 20090904, end: 20090905
  4. LIPITOR [Concomitant]
     Dosage: 10 MG, DAILY
     Route: 048
     Dates: start: 20080623
  5. CARVEDILOL [Concomitant]
     Indication: CHRONIC MYELOID LEUKAEMIA
     Dosage: 10 MG, DAILY
     Route: 048
     Dates: start: 20080805
  6. TASIGNA [Suspect]
     Indication: CHRONIC MYELOID LEUKAEMIA
     Dosage: 200 MG DAILY
     Route: 048
     Dates: start: 20090508, end: 20090619
  7. ISOSORBIDE MONONITRATE [Concomitant]
     Indication: CHRONIC MYELOID LEUKAEMIA
     Dosage: 40 MG, DAILY
     Route: 048
     Dates: start: 20080501

REACTIONS (6)
  - HAEMOGLOBIN DECREASED [None]
  - PLATELET COUNT DECREASED [None]
  - DYSPNOEA EXERTIONAL [None]
  - GINGIVAL BLEEDING [None]
  - SMALL INTESTINAL HAEMORRHAGE [None]
  - FAECES DISCOLOURED [None]
